FAERS Safety Report 9075177 (Version 1)
Quarter: 2013Q1

REPORT INFORMATION
  Report Type: Report from Study
  Country: US (occurrence: US)
  Receive Date: 20130129
  Receipt Date: 20130129
  Transmission Date: 20140127
  Serious: No
  Sender: FDA-Public Use
  Company Number: US-ABBOTT-12P-163-0923354-00

PATIENT
  Age: 38 Year
  Sex: Male

DRUGS (2)
  1. HUMIRA 40 MG/0.8 ML PEN [Suspect]
     Indication: PITYRIASIS RUBRA PILARIS
     Dates: start: 20120404
  2. BENADRYL [Concomitant]
     Indication: PRURITUS
     Dosage: 1 PILL EVERY OTHER DAY

REACTIONS (5)
  - Injection related reaction [Recovered/Resolved]
  - Injection site pain [Unknown]
  - Hyperhidrosis [Unknown]
  - Immediate post-injection reaction [Unknown]
  - Injection site reaction [Unknown]
